FAERS Safety Report 6393625-8 (Version None)
Quarter: 2009Q4

REPORT INFORMATION
  Report Type: 
  Country: None (occurrence: None)
  Receive Date: 20091008
  Receipt Date: 20090929
  Transmission Date: 20100525
  Serious: Yes (Hospitalization, Other)
  Sender: FDA-Public Use
  Company Number: US-PFIZER INC-2009276826

PATIENT
  Sex: Male

DRUGS (2)
  1. XANAX [Suspect]
     Dosage: UNK
     Route: 048
     Dates: start: 20070923
  2. OXYCONTIN [Suspect]
     Dosage: UNK
     Route: 048
     Dates: start: 20070923

REACTIONS (4)
  - ANOXIC ENCEPHALOPATHY [None]
  - COMA [None]
  - CONVULSION [None]
  - DEPRESSION [None]
